FAERS Safety Report 21842992 (Version 6)
Quarter: 2023Q1

REPORT INFORMATION
  Report Type: Spontaneous
  Country: AR (occurrence: AR)
  Receive Date: 20230110
  Receipt Date: 20230306
  Transmission Date: 20230418
  Serious: No
  Sender: FDA-Public Use
  Company Number: AR-PFIZER INC-PV202300002517

PATIENT
  Age: 12 Year
  Sex: Female

DRUGS (1)
  1. GENOTROPIN [Suspect]
     Active Substance: SOMATROPIN
     Indication: Foetal growth restriction
     Dosage: 1.5 TO 2 MG 7 TIMES PER WEEK
     Dates: start: 20220526

REACTIONS (5)
  - Wrong technique in device usage process [Unknown]
  - Device mechanical issue [Unknown]
  - Device information output issue [Unknown]
  - Device breakage [Unknown]
  - Device malfunction [Unknown]

NARRATIVE: CASE EVENT DATE: 20230101
